FAERS Safety Report 5384974-0 (Version None)
Quarter: 2007Q3

REPORT INFORMATION
  Report Type: 
  Country: None (occurrence: None)
  Receive Date: 20070709
  Receipt Date: 20070626
  Transmission Date: 20080115
  Serious: Yes (Death, Hospitalization, Other)
  Sender: FDA-Public Use
  Company Number: 38516

PATIENT
  Age: 28 Year
  Sex: Female

DRUGS (3)
  1. METHOTREXATE INJ. USP 50MG/2ML - BEDFORD LABS, INC. [Suspect]
     Indication: NON-HODGKIN'S LYMPHOMA
  2. METHOTREXATE INJ. USP 50MG/2ML - BEDFORD LABS, INC. [Suspect]
     Indication: T-CELL LYMPHOMA
  3. CYTARABINE [Suspect]

REACTIONS (11)
  - DYSURIA [None]
  - FAECAL INCONTINENCE [None]
  - INFECTION [None]
  - MUSCULAR WEAKNESS [None]
  - NEUROLOGICAL SYMPTOM [None]
  - PALLANAESTHESIA [None]
  - PARAESTHESIA [None]
  - SENSORY DISTURBANCE [None]
  - SEPTIC SHOCK [None]
  - SUBACUTE COMBINED CORD DEGENERATION [None]
  - URINARY INCONTINENCE [None]
